FAERS Safety Report 19973759 (Version 1)
Quarter: 2021Q4

REPORT INFORMATION
  Report Type: Spontaneous
  Country: US (occurrence: US)
  Receive Date: 20211020
  Receipt Date: 20211020
  Transmission Date: 20220303
  Serious: Yes (Death, Hospitalization)
  Sender: FDA-Public Use
  Company Number: None

PATIENT
  Age: 63 Year
  Sex: Male
  Weight: 126.7 kg

DRUGS (1)
  1. XARELTO [Suspect]
     Active Substance: RIVAROXABAN
     Indication: Atrial fibrillation
     Route: 048
     Dates: start: 20210420, end: 20210920

REACTIONS (11)
  - Unresponsive to stimuli [None]
  - Vomiting [None]
  - Headache [None]
  - Heart rate increased [None]
  - Respiratory rate increased [None]
  - Haemoglobin decreased [None]
  - Haematocrit decreased [None]
  - Cerebral haemorrhage [None]
  - Acute respiratory failure [None]
  - Hypervolaemia [None]
  - Renal failure [None]

NARRATIVE: CASE EVENT DATE: 20210920
